FAERS Safety Report 11310002 (Version 1)
Quarter: 2015Q3

REPORT INFORMATION
  Report Type: Spontaneous
  Country: PT (occurrence: PT)
  Receive Date: 20150724
  Receipt Date: 20150724
  Transmission Date: 20151125
  Serious: Yes (Other)
  Sender: FDA-Public Use
  Company Number: PT-PFIZER INC-2015246356

PATIENT
  Age: 73 Year
  Sex: Male

DRUGS (4)
  1. IRBESARTAN. [Concomitant]
     Active Substance: IRBESARTAN
     Dosage: 300/12.5
     Route: 048
  2. SINVASTATINA [Concomitant]
     Active Substance: SIMVASTATIN
     Dosage: 20 MG, UNK
     Route: 048
  3. SOLU-CORTEF [Suspect]
     Active Substance: HYDROCORTISONE SODIUM SUCCINATE
     Indication: ARTHRALGIA
     Dosage: 200 MG, SINGLE
     Route: 042
     Dates: start: 20150708, end: 20150708
  4. DYNASTAT [Concomitant]
     Active Substance: PARECOXIB SODIUM
     Indication: ARTHRALGIA
     Dosage: 1 DF, SINGLE
     Dates: start: 20150708, end: 20150708

REACTIONS (6)
  - Paraesthesia [Recovered/Resolved]
  - Hyperhidrosis [Recovered/Resolved]
  - Sense of oppression [Recovered/Resolved]
  - Hypotension [Recovered/Resolved]
  - Oropharyngeal discomfort [Recovered/Resolved]
  - Cough [Recovered/Resolved]

NARRATIVE: CASE EVENT DATE: 20150708
